FAERS Safety Report 8338777-5 (Version None)
Quarter: 2012Q2

REPORT INFORMATION
  Report Type: 
  Country: None (occurrence: None)
  Receive Date: 20120504
  Receipt Date: 20120430
  Transmission Date: 20120825
  Serious: Yes (Hospitalization)
  Sender: FDA-Public Use
  Company Number: US-GILEAD-2012-0054165

PATIENT
  Sex: Female

DRUGS (23)
  1. VENTAVIS [Concomitant]
  2. REVATIO [Concomitant]
     Indication: PULMONARY HYPERTENSION
  3. OXYGEN [Concomitant]
     Indication: HYPOXIA
  4. VITAMIN D [Concomitant]
  5. COUMADIN [Concomitant]
  6. PREDNISONE TAB [Concomitant]
  7. SINEMET [Concomitant]
  8. LETAIRIS [Suspect]
     Indication: PULMONARY HYPERTENSION
     Dosage: 10 MG, UNK
     Route: 048
  9. OXYGEN [Concomitant]
     Indication: PULMONARY FIBROSIS
  10. PEPCID COMPLETE                    /00706001/ [Concomitant]
  11. AZATHIOPRINE [Concomitant]
  12. PREVACID [Concomitant]
     Indication: GASTROOESOPHAGEAL REFLUX DISEASE
  13. PREVACID [Concomitant]
     Indication: DIVERTICULUM
  14. MULTIPLE VITAMINS [Concomitant]
  15. FUROSEMIDE [Concomitant]
  16. CARBIDOPA AND LEVODOPA [Concomitant]
  17. PRIMIDONE [Concomitant]
  18. INDERAL [Concomitant]
  19. LASIX [Concomitant]
  20. NYSTATIN [Concomitant]
  21. PROPRANOLOL [Concomitant]
  22. VITAMIN C                          /00008001/ [Concomitant]
  23. MYSOLINE [Concomitant]

REACTIONS (1)
  - RECTAL HAEMORRHAGE [None]
